FAERS Safety Report 4816630-9 (Version None)
Quarter: 2005Q4

REPORT INFORMATION
  Report Type: 
  Country: None (occurrence: None)
  Receive Date: 20051028
  Receipt Date: 20051018
  Transmission Date: 20060501
  Serious: Yes (Hospitalization)
  Sender: FDA-Public Use
  Company Number: 200508457

PATIENT
  Age: 42 Year
  Sex: Female

DRUGS (3)
  1. BOTOX COSMETIC [Suspect]
     Indication: SKIN WRINKLING
     Dosage: 24 UNITS ONCE IM
     Route: 030
     Dates: start: 20050920, end: 20050920
  2. BOTOX COSMETIC [Suspect]
     Indication: SKIN WRINKLING
     Dosage: 4 UNITS ONCE IM
     Route: 030
     Dates: start: 20050802, end: 20050802
  3. BOTOX COSMETIC [Suspect]
     Indication: SKIN WRINKLING
     Dosage: 20 UNITS ONCE IM
     Route: 030
     Dates: start: 20050718, end: 20050718

REACTIONS (2)
  - DYSPNOEA [None]
  - FEELING ABNORMAL [None]
